FAERS Safety Report 23175007 (Version 1)
Quarter: 2023Q4

REPORT INFORMATION
  Report Type: Report from Study
  Country: CA (occurrence: CA)
  Receive Date: 20231112
  Receipt Date: 20231112
  Transmission Date: 20240110
  Serious: Yes (Other)
  Sender: FDA-Public Use
  Company Number: CA-002147023-NVSC2023CA017166

PATIENT
  Age: 29 Year
  Sex: Male

DRUGS (4)
  1. COSENTYX [Suspect]
     Active Substance: SECUKINUMAB
     Indication: Ankylosing spondylitis
     Dosage: 150 MG, QMO
     Route: 058
     Dates: start: 20221101
  2. COSENTYX [Suspect]
     Active Substance: SECUKINUMAB
     Dosage: 300 MG, QMO
     Route: 065
     Dates: start: 20230425
  3. NAPROXEN [Concomitant]
     Active Substance: NAPROXEN
     Indication: Product used for unknown indication
     Dosage: UNK
     Route: 048
  4. INDOMETHACIN [Concomitant]
     Active Substance: INDOMETHACIN
     Indication: Product used for unknown indication
     Dosage: UNK, BID
     Route: 048

REACTIONS (11)
  - Dependence [Unknown]
  - Thermal burn [Unknown]
  - General physical health deterioration [Not Recovered/Not Resolved]
  - Fatigue [Unknown]
  - Back pain [Unknown]
  - Arthralgia [Unknown]
  - Neck pain [Unknown]
  - Joint swelling [Unknown]
  - Discomfort [Unknown]
  - Musculoskeletal stiffness [Unknown]
  - Pain [Unknown]

NARRATIVE: CASE EVENT DATE: 20230101
